FAERS Safety Report 7580396-2 (Version None)
Quarter: 2011Q2

REPORT INFORMATION
  Report Type: 
  Country: None (occurrence: None)
  Receive Date: 20110629
  Receipt Date: 20110617
  Transmission Date: 20111010
  Serious: Yes (Other)
  Sender: FDA-Public Use
  Company Number: US-JNJFOC-20110608884

PATIENT
  Sex: Female
  Weight: 114.76 kg

DRUGS (3)
  1. TPN [Concomitant]
     Indication: ARTHROPATHY
     Dosage: 2 CANS OF ^SUPPLE^ SOLUTION IN 24 HOURS TO HELP WITH JOINTS.
     Route: 048
     Dates: start: 20090101
  2. REMICADE [Suspect]
     Indication: RHEUMATOID ARTHRITIS
     Route: 042
     Dates: start: 20100101
  3. NEXIUM [Concomitant]
     Indication: GASTROOESOPHAGEAL REFLUX DISEASE
     Route: 048
     Dates: start: 20080101

REACTIONS (5)
  - SUDDEN HEARING LOSS [None]
  - INFUSION RELATED REACTION [None]
  - EAR INFECTION [None]
  - SINUSITIS [None]
  - PRURITUS [None]
